FAERS Safety Report 24372738 (Version 1)
Quarter: 2024Q3

REPORT INFORMATION
  Report Type: Report from Study
  Country: US (occurrence: US)
  Receive Date: 20240927
  Receipt Date: 20240927
  Transmission Date: 20241017
  Serious: Yes (Other)
  Sender: TG THERAPEUTICS
  Company Number: US-TG THERAPEUTICS INC.-TGT004034

PATIENT

DRUGS (5)
  1. UBLITUXIMAB [Suspect]
     Active Substance: UBLITUXIMAB
     Indication: Multiple sclerosis
     Dosage: 150 MILLIGRAM
     Route: 042
     Dates: start: 20240312, end: 20240312
  2. UBLITUXIMAB [Suspect]
     Active Substance: UBLITUXIMAB
     Dosage: 450 MILLIGRAM
     Route: 042
     Dates: start: 20240326, end: 20240326
  3. UBLITUXIMAB [Suspect]
     Active Substance: UBLITUXIMAB
     Dosage: UNK MILLIGRAM
     Route: 042
     Dates: start: 20240904, end: 20240904
  4. INFLUENZA VIRUS VACCINE [Concomitant]
     Active Substance: INFLUENZA VIRUS VACCINE
     Indication: Immunisation
     Dosage: UNK
     Dates: start: 2024
  5. COVID-19 VACCINE [Concomitant]
     Indication: Immunisation
     Dosage: UNK
     Dates: start: 2024

REACTIONS (2)
  - Lupus-like syndrome [Not Recovered/Not Resolved]
  - Systemic lupus erythematosus rash [Not Recovered/Not Resolved]

NARRATIVE: CASE EVENT DATE: 20240101
